FAERS Safety Report 4931500-3 (Version None)
Quarter: 2006Q1

REPORT INFORMATION
  Report Type: 
  Country: None (occurrence: None)
  Receive Date: 20060118
  Receipt Date: 20050912
  Transmission Date: 20060701
  Serious: Yes (Other)
  Sender: FDA-Public Use
  Company Number: US-JNJFOC-20050804167

PATIENT
  Age: 76 Year
  Sex: Female

DRUGS (2)
  1. DOXIL [Suspect]
     Indication: OVARIAN CANCER
     Dosage: 70 MG, INTRAVENOUS ; 60 MG, INTRAVENOUS
     Route: 042
     Dates: start: 20050627
  2. DOXIL [Suspect]
     Indication: OVARIAN CANCER
     Dosage: 70 MG, INTRAVENOUS ; 60 MG, INTRAVENOUS
     Route: 042
     Dates: start: 20050718

REACTIONS (1)
  - PALMAR-PLANTAR ERYTHRODYSAESTHESIA SYNDROME [None]
